FAERS Safety Report 5320261-4 (Version None)
Quarter: 2007Q2

REPORT INFORMATION
  Report Type: 
  Country: None (occurrence: None)
  Receive Date: 20070509
  Receipt Date: 20070427
  Transmission Date: 20071010
  Serious: Yes (Hospitalization)
  Sender: FDA-Public Use
  Company Number: JP-ROCHE-485972

PATIENT
  Age: 47 Year
  Sex: Female
  Weight: 45 kg

DRUGS (2)
  1. TAMIFLU [Suspect]
     Route: 048
     Dates: start: 20070216, end: 20070220
  2. CALONAL [Suspect]
     Indication: DRUG USE FOR UNKNOWN INDICATION
     Dosage: GENERIC REPORTED AS ACETAMINOPHEN.
     Route: 048
     Dates: start: 20070216, end: 20070219

REACTIONS (3)
  - BLOOD BILIRUBIN INCREASED [None]
  - HEPATIC FUNCTION ABNORMAL [None]
  - JAUNDICE [None]
